FAERS Safety Report 25851690 (Version 3)
Quarter: 2025Q4

REPORT INFORMATION
  Report Type: Report from Study
  Country: JP (occurrence: JP)
  Receive Date: 20250926
  Receipt Date: 20251121
  Transmission Date: 20260117
  Serious: Yes (Hospitalization)
  Sender: EISAI
  Company Number: JP-009507513-2331703

PATIENT
  Age: 71 Year
  Sex: Male

DRUGS (15)
  1. LENVATINIB [Suspect]
     Active Substance: LENVATINIB
     Indication: Pleural mesothelioma malignant
     Route: 048
     Dates: start: 20250911, end: 20250930
  2. LENVATINIB [Suspect]
     Active Substance: LENVATINIB
     Route: 048
     Dates: start: 20251021
  3. PEMBROLIZUMAB [Suspect]
     Active Substance: PEMBROLIZUMAB
     Indication: Pleural mesothelioma malignant
     Route: 042
     Dates: start: 20250911
  4. CARBOPLATIN [Suspect]
     Active Substance: CARBOPLATIN
     Indication: Pleural mesothelioma malignant
     Route: 042
     Dates: start: 20250911, end: 20250911
  5. CARBOPLATIN [Suspect]
     Active Substance: CARBOPLATIN
     Route: 042
     Dates: start: 20251021
  6. PEMETREXED [Suspect]
     Active Substance: PEMETREXED
     Indication: Pleural mesothelioma malignant
     Route: 042
     Dates: start: 20250911, end: 20250911
  7. PEMETREXED [Suspect]
     Active Substance: PEMETREXED
     Route: 042
     Dates: start: 20251021
  8. PANVITAN POWDER [Concomitant]
     Indication: Vitamin supplementation
     Route: 048
     Dates: start: 20250905
  9. HEPARINOID [Concomitant]
     Indication: Prophylaxis
     Dosage: ROUTE OF ADMINISTRATION: APPLICATION
     Dates: start: 20250910
  10. UREA [Concomitant]
     Active Substance: UREA
     Indication: Prophylaxis
     Dosage: FREQUNECY: TID~QID?ROUTE OF ADMINISTRATION: APPLICATION
  11. METHYLCOBALAMIN [Concomitant]
     Active Substance: METHYLCOBALAMIN
     Indication: Vitamin supplementation
     Dosage: FREQUENCY: CYCLICAL EVERY 3 COURSES
     Route: 030
     Dates: start: 20250904
  12. MAGNESIUM OXIDE [Concomitant]
     Active Substance: MAGNESIUM OXIDE
     Indication: Constipation
     Route: 048
     Dates: start: 20250910
  13. DEXAMETHASONE SODIUM PHOSPHATE [Concomitant]
     Active Substance: DEXAMETHASONE SODIUM PHOSPHATE
     Indication: Prophylaxis of nausea and vomiting
     Dosage: ON DAY 1 OF EACH COURSE IN THE INDUCTION
     Route: 042
     Dates: start: 20250911
  14. PALONOSETRON HYDROCHLORIDE [Concomitant]
     Active Substance: PALONOSETRON HYDROCHLORIDE
     Indication: Prophylaxis of nausea and vomiting
     Dosage: DAY 1 OF EACH COURSE IN THE INDUCTION
     Route: 042
     Dates: start: 20250911
  15. FOSNETUPITANT CHLORIDE HYDROCHLORIDE [Concomitant]
     Active Substance: FOSNETUPITANT CHLORIDE HYDROCHLORIDE
     Indication: Prophylaxis of nausea and vomiting
     Dosage: DAY 1 OF EACH COURSE IN THE INDUCTION
     Route: 042
     Dates: start: 20250911

REACTIONS (1)
  - Diverticulitis [Not Recovered/Not Resolved]

NARRATIVE: CASE EVENT DATE: 20250911
